FAERS Safety Report 10273280 (Version 1)
Quarter: 2014Q3

REPORT INFORMATION
  Report Type: Spontaneous
  Country: US (occurrence: US)
  Receive Date: 20140702
  Receipt Date: 20140702
  Transmission Date: 20150326
  Serious: Yes (Hospitalization, Other)
  Sender: FDA-Public Use
  Company Number: CHPA2014US008661

PATIENT
  Age: 58 Year
  Sex: Male

DRUGS (6)
  1. ASPIRIN. [Concomitant]
     Active Substance: ASPIRIN
  2. EXCEDRIN BACK AND BODY [Suspect]
     Active Substance: ACETAMINOPHEN\ASPIRIN
     Indication: PAIN
  3. EXCEDRIN BACK AND BODY [Suspect]
     Active Substance: ACETAMINOPHEN\ASPIRIN
     Indication: BACK PAIN
     Dosage: UNK
     Route: 048
     Dates: start: 2013, end: 20140624
  4. ARICEPT [Concomitant]
     Active Substance: DONEPEZIL HYDROCHLORIDE
     Indication: FRONTOTEMPORAL DEMENTIA
  5. NAMENDA [Concomitant]
     Active Substance: MEMANTINE HYDROCHLORIDE
     Indication: FRONTOTEMPORAL DEMENTIA
  6. TYLENOL [Concomitant]
     Active Substance: ACETAMINOPHEN

REACTIONS (3)
  - Frontotemporal dementia [Unknown]
  - Accident at work [Recovering/Resolving]
  - Expired product administered [Unknown]

NARRATIVE: CASE EVENT DATE: 201401
